FAERS Safety Report 7771891-1 (Version None)
Quarter: 2011Q3

REPORT INFORMATION
  Report Type: 
  Country: None (occurrence: None)
  Receive Date: 20110922
  Receipt Date: 20110207
  Transmission Date: 20111222
  Serious: No
  Sender: FDA-Public Use
  Company Number: US-ASTRAZENECA-2011SE06905

PATIENT
  Age: 38 Year
  Sex: Female
  Weight: 77.1 kg

DRUGS (2)
  1. CYMBALTA [Concomitant]
  2. SEROQUEL [Suspect]
     Indication: SCHIZOPHRENIA
     Route: 048
     Dates: start: 20101001, end: 20110117

REACTIONS (5)
  - NERVOUSNESS [None]
  - INSOMNIA [None]
  - TREMOR [None]
  - DRUG DOSE OMISSION [None]
  - FORMICATION [None]
